FAERS Safety Report 5105240-4 (Version None)
Quarter: 2006Q3

REPORT INFORMATION
  Report Type: 
  Country: None (occurrence: None)
  Receive Date: 20060911
  Receipt Date: 20060822
  Transmission Date: 20061208
  Serious: Yes (Other)
  Sender: FDA-Public Use
  Company Number: US200608004892

PATIENT
  Age: 46 Year
  Sex: Male

DRUGS (2)
  1. HUMALOG [Suspect]
     Indication: DIABETES MELLITUS
     Dosage: SUB. PUMP
     Dates: start: 20000101
  2. ILETIN [Suspect]
     Indication: DIABETES MELLITUS
     Dates: start: 19690101

REACTIONS (11)
  - ABNORMAL FAECES [None]
  - BLOOD PRESSURE INADEQUATELY CONTROLLED [None]
  - CARDIAC DISORDER [None]
  - CONSTIPATION [None]
  - FREQUENT BOWEL MOVEMENTS [None]
  - GASTRIC DISORDER [None]
  - HEPATIC FAILURE [None]
  - INFUSION SITE REACTION [None]
  - INTESTINAL FUNCTIONAL DISORDER [None]
  - PHARMACEUTICAL PRODUCT COMPLAINT [None]
  - RENAL FAILURE [None]
